FAERS Safety Report 16687254 (Version 1)
Quarter: 2019Q4

REPORT INFORMATION
  Report Type: Spontaneous
  Country: US (occurrence: US)
  Receive Date: 20190808
  Receipt Date: 20190808
  Transmission Date: 20200122
  Serious: Yes (Other)
  Sender: FDA-Public Use
  Company Number: None

PATIENT
  Age: 34 Year
  Sex: Female
  Weight: 81.9 kg

DRUGS (3)
  1. QSYMIA [Suspect]
     Active Substance: PHENTERMINE HYDROCHLORIDE\TOPIRAMATE
     Indication: WEIGHT DECREASED
     Route: 048
     Dates: start: 20160501, end: 20170701
  2. PHENTERMINE. [Concomitant]
     Active Substance: PHENTERMINE
  3. NALTREXONE [Concomitant]
     Active Substance: NALTREXONE

REACTIONS (1)
  - Alopecia [None]

NARRATIVE: CASE EVENT DATE: 20170301
